FAERS Safety Report 6894417-3 (Version None)
Quarter: 2010Q3

REPORT INFORMATION
  Report Type: 
  Country: None (occurrence: None)
  Receive Date: 20100728
  Receipt Date: 20100713
  Transmission Date: 20110219
  Serious: Yes (Hospitalization)
  Sender: FDA-Public Use
  Company Number: 2010RR-34389

PATIENT
  Age: 62 Year
  Sex: Female

DRUGS (4)
  1. FENOFIBRATE [Suspect]
     Indication: HYPERLIPIDAEMIA
     Dosage: 200 MG, ORAL
     Route: 048
     Dates: start: 20100514, end: 20100524
  2. BENIDIPINE HYDROCHLORIDE (BENIDIPINE HYDROCHLORIDE) [Concomitant]
  3. SODIUM RISEDRONATE HYDRATE (SODIUM RISEDRONATE HYDRATE) [Concomitant]
  4. IMIDAPRIL HYDROCHLORIDE (IMIDAPRIL HYDROCHLORIDE) [Concomitant]

REACTIONS (2)
  - DRUG ERUPTION [None]
  - HEPATIC FUNCTION ABNORMAL [None]
